FAERS Safety Report 6172110-2 (Version None)
Quarter: 2009Q2

REPORT INFORMATION
  Report Type: 
  Country: None (occurrence: None)
  Receive Date: 20090424
  Receipt Date: 20090212
  Transmission Date: 20091009
  Serious: No
  Sender: FDA-Public Use
  Company Number: ALL1-2009-00381

PATIENT
  Sex: Male

DRUGS (1)
  1. VYVANSE [Suspect]
     Dosage: 50 MG, 1X/DAY:QD, ORAL ; 100 MG, ONE DOSE, ORAL
     Route: 048
     Dates: start: 20090212, end: 20090212

REACTIONS (1)
  - ACCIDENTAL OVERDOSE [None]
